FAERS Safety Report 10342097 (Version 2)
Quarter: 2014Q3

REPORT INFORMATION
  Report Type: Spontaneous
  Country: US (occurrence: US)
  Receive Date: 20140725
  Receipt Date: 20140821
  Transmission Date: 20150326
  Serious: No
  Sender: FDA-Public Use
  Company Number: US-PFIZER INC-2014204730

PATIENT
  Age: 66 Year
  Sex: Female
  Weight: 53.52 kg

DRUGS (5)
  1. TAPAZOLE [Suspect]
     Active Substance: METHIMAZOLE
     Dosage: 10 MG, 1X/DAY
     Route: 048
     Dates: start: 20140502
  2. ATENOLOL. [Concomitant]
     Active Substance: ATENOLOL
     Indication: BASEDOW^S DISEASE
     Dosage: UNK
  3. TAPAZOLE [Suspect]
     Active Substance: METHIMAZOLE
     Dosage: 30 MG (3 TABLET 10MG TABLET AT A TIME), 1X/DAY
     Route: 048
     Dates: start: 2014, end: 20140502
  4. TAPAZOLE [Suspect]
     Active Substance: METHIMAZOLE
     Dosage: 30 MG, 1X/DAY
     Route: 048
     Dates: start: 20140219
  5. TAPAZOLE [Suspect]
     Active Substance: METHIMAZOLE
     Indication: BASEDOW^S DISEASE
     Dosage: 10 MG, 1X/DAY
     Route: 048
     Dates: start: 20140219, end: 2014

REACTIONS (7)
  - Stress [Unknown]
  - Blood test abnormal [Unknown]
  - Blood thyroid stimulating hormone abnormal [Unknown]
  - Alopecia [Unknown]
  - Trichorrhexis [Unknown]
  - Therapeutic response changed [Unknown]
  - Incorrect dosage administered [Unknown]

NARRATIVE: CASE EVENT DATE: 2014
